FAERS Safety Report 9809453 (Version 1)
Quarter: 2014Q1

REPORT INFORMATION
  Report Type: Spontaneous
  Country: CL (occurrence: CL)
  Receive Date: 20140110
  Receipt Date: 20140110
  Transmission Date: 20141002
  Serious: Yes (Other)
  Sender: FDA-Public Use
  Company Number: CL-PFIZER INC-2014007496

PATIENT
  Age: 76 Year
  Sex: Female

DRUGS (4)
  1. XALATAN [Suspect]
     Indication: GLAUCOMA
     Dosage: 1 GTT, 1X/DAY (1 DROP PER EYE AT NIGHT)
     Route: 047
     Dates: start: 200801
  2. ENALAPRIL [Concomitant]
  3. METFORMIN [Concomitant]
  4. GEMFIBROZIL [Concomitant]

REACTIONS (2)
  - Cataract [Unknown]
  - Memory impairment [Not Recovered/Not Resolved]
